FAERS Safety Report 5310044-3 (Version None)
Quarter: 2007Q2

REPORT INFORMATION
  Report Type: 
  Country: None (occurrence: None)
  Receive Date: 20070427
  Receipt Date: 20070425
  Transmission Date: 20071010
  Serious: Yes (Other)
  Sender: FDA-Public Use
  Company Number: JP-JPN-A200701076

PATIENT
  Age: 8 Year
  Sex: Male
  Weight: 26 kg

DRUGS (7)
  1. RELENZA [Suspect]
     Indication: INFLUENZA
     Dosage: 10MG PER DAY
     Route: 055
     Dates: start: 20070308, end: 20070309
  2. NEUZYM [Concomitant]
     Indication: BRONCHITIS
     Dosage: 30MG PER DAY
     Route: 048
     Dates: start: 20070308
  3. FLOMOX [Concomitant]
     Indication: BRONCHITIS
     Dosage: 300MG PER DAY
     Route: 048
     Dates: start: 20070308
  4. MUCOSTA [Concomitant]
     Indication: GASTRITIS
     Dosage: 300MG PER DAY
     Route: 048
     Dates: start: 20070308
  5. CALONAL [Concomitant]
     Indication: BRONCHITIS
     Dosage: 600MG PER DAY
     Route: 048
     Dates: start: 20070308
  6. AMBROXOL HYDROCHLORIDE [Concomitant]
     Indication: BRONCHITIS
     Dosage: 45MG PER DAY
     Route: 048
     Dates: start: 20070308
  7. PENTOXYVERINE CITRATE [Concomitant]
     Indication: BRONCHITIS
     Dosage: 90MG PER DAY
     Route: 048
     Dates: start: 20070308

REACTIONS (3)
  - ABNORMAL BEHAVIOUR [None]
  - DELIRIUM [None]
  - DRY MOUTH [None]
